FAERS Safety Report 4926974-8 (Version None)
Quarter: 2006Q1

REPORT INFORMATION
  Report Type: 
  Country: None (occurrence: None)
  Receive Date: 20060228
  Receipt Date: 20050927
  Transmission Date: 20060701
  Serious: No
  Sender: FDA-Public Use
  Company Number: US-GLAXOSMITHKLINE-A0576046A

PATIENT
  Age: 51 Year
  Sex: Male
  Weight: 93.2 kg

DRUGS (3)
  1. LAMICTAL [Suspect]
     Indication: BIPOLAR DISORDER
     Dosage: 25MCG TWICE PER DAY
     Route: 048
     Dates: end: 20050926
  2. SYNTHROID [Concomitant]
     Indication: HYPOTHYROIDISM
     Dosage: 50MG UNKNOWN
     Route: 048
     Dates: start: 20050901
  3. LITHIUM [Concomitant]
     Dosage: 300MG AT NIGHT
     Route: 048

REACTIONS (2)
  - DEPRESSION [None]
  - RASH GENERALISED [None]
